FAERS Safety Report 12646752 (Version 1)
Quarter: 2016Q3

REPORT INFORMATION
  Report Type: Spontaneous
  Country: US (occurrence: US)
  Receive Date: 20160812
  Receipt Date: 20160812
  Transmission Date: 20161109
  Serious: No
  Sender: FDA-Public Use
  Company Number: US-BEH-2016072185

PATIENT
  Sex: Female
  Weight: 66.67 kg

DRUGS (25)
  1. HIZENTRA [Suspect]
     Active Substance: HUMAN IMMUNOGLOBULIN G
     Indication: IMMUNODEFICIENCY COMMON VARIABLE
     Dosage: 8 G, QW
     Route: 058
     Dates: start: 20110921
  2. CEFUROXIME AXETIL. [Concomitant]
     Active Substance: CEFUROXIME AXETIL
  3. TRILIPIX [Concomitant]
     Active Substance: FENOFIBRIC ACID
  4. CARAC                              /00098801/ [Concomitant]
  5. ZONISAMIDE. [Concomitant]
     Active Substance: ZONISAMIDE
  6. DULERA [Concomitant]
     Active Substance: FORMOTEROL FUMARATE DIHYDRATE\MOMETASONE FUROATE
  7. CELEBREX [Concomitant]
     Active Substance: CELECOXIB
  8. ZYRTEC [Concomitant]
     Active Substance: CETIRIZINE HYDROCHLORIDE
  9. VENTOLIN [Concomitant]
     Active Substance: ALBUTEROL SULFATE
  10. ACETAMINOPHEN. [Concomitant]
     Active Substance: ACETAMINOPHEN
  11. DIPHENHYDRAMINE. [Concomitant]
     Active Substance: DIPHENHYDRAMINE
  12. DORZOLAMIDE [Concomitant]
     Active Substance: DORZOLAMIDE
  13. LOTEMAX [Concomitant]
     Active Substance: LOTEPREDNOL ETABONATE
  14. ZETIA [Concomitant]
     Active Substance: EZETIMIBE
  15. METFORMIN [Concomitant]
     Active Substance: METFORMIN HYDROCHLORIDE
  16. NEPAFENAC [Concomitant]
     Active Substance: NEPAFENAC
  17. AMLODIPINE [Concomitant]
     Active Substance: AMLODIPINE BESYLATE
  18. SINGULAIR [Concomitant]
     Active Substance: MONTELUKAST SODIUM
  19. LIDOCAINE. [Concomitant]
     Active Substance: LIDOCAINE
  20. EPIPEN [Concomitant]
     Active Substance: EPINEPHRINE
  21. ZYFLO [Concomitant]
     Active Substance: ZILEUTON
  22. PROZAC [Concomitant]
     Active Substance: FLUOXETINE HYDROCHLORIDE
  23. NYSTATIN. [Concomitant]
     Active Substance: NYSTATIN
  24. BESIVANCE                          /06324101/ [Concomitant]
  25. PRILOSEC [Concomitant]
     Active Substance: OMEPRAZOLE MAGNESIUM

REACTIONS (2)
  - Gastrooesophageal reflux disease [Unknown]
  - Cough [Unknown]
